FAERS Safety Report 8027687-9 (Version None)
Quarter: 2012Q1

REPORT INFORMATION
  Report Type: 
  Country: None (occurrence: None)
  Receive Date: 20120104
  Receipt Date: 20111219
  Transmission Date: 20120608
  Serious: Yes (Hospitalization)
  Sender: FDA-Public Use
  Company Number: 2011-000130

PATIENT
  Age: 81 Year
  Sex: Female

DRUGS (2)
  1. ACTONEL [Suspect]
     Indication: OSTEOPOROSIS
     Dosage: 2.5 MG DAILY, ORAL
     Route: 048
     Dates: start: 20040701, end: 20080101
  2. ALENDRONATE SODIUM [Suspect]
     Indication: OSTEOPOROSIS
     Dosage: 17.5 MG,ORAL
     Route: 048
     Dates: start: 20080101, end: 20100301

REACTIONS (4)
  - COMPRESSION FRACTURE [None]
  - FALL [None]
  - FEMUR FRACTURE [None]
  - BONE FRAGMENTATION [None]
